FAERS Safety Report 21095887 (Version 1)
Quarter: 2022Q3

REPORT INFORMATION
  Report Type: Report from Study
  Country: FR (occurrence: FR)
  Receive Date: 20220718
  Receipt Date: 20220718
  Transmission Date: 20221026
  Serious: Yes (Other)
  Sender: FDA-Public Use
  Company Number: FR-BRISTOL-MYERS SQUIBB COMPANY-2022-028008

PATIENT
  Age: 81 Year
  Sex: Male
  Weight: 81 kg

DRUGS (2)
  1. ISTODAX [Suspect]
     Active Substance: ROMIDEPSIN
     Indication: Product used for unknown indication
     Dosage: D1,D8, D15 OF EACH 28-DAY CYCLE
     Route: 065
     Dates: start: 20210727
  2. ISTODAX [Suspect]
     Active Substance: ROMIDEPSIN
     Dosage: ON DAYS 1 PLUS 15
     Route: 065
     Dates: start: 20211102

REACTIONS (2)
  - Angioimmunoblastic T-cell lymphoma [Unknown]
  - Haematotoxicity [Unknown]
